FAERS Safety Report 5089065-4 (Version None)
Quarter: 2006Q3

REPORT INFORMATION
  Report Type: 
  Country: None (occurrence: None)
  Receive Date: 20060822
  Receipt Date: 20060801
  Transmission Date: 20061208
  Serious: Yes (Hospitalization, Other)
  Sender: FDA-Public Use
  Company Number: FR200608000633

PATIENT
  Sex: Female

DRUGS (6)
  1. PROZAC [Suspect]
     Dosage: ORAL
     Route: 048
     Dates: end: 19960131
  2. PERINDOPRIL ERBUMINE [Concomitant]
  3. ASPEGIC 1000 [Concomitant]
  4. FENOFIBRATE [Concomitant]
  5. TORENTAL (PENTOXIFYLLINE) [Concomitant]
  6. ISOPTIN /GFR/ (VERAPAMIL HYDROCHLORIDE) [Concomitant]

REACTIONS (8)
  - BLOOD CULTURE POSITIVE [None]
  - CORYNEBACTERIUM INFECTION [None]
  - DRUG EXPOSURE DURING PREGNANCY [None]
  - HYPERTENSION [None]
  - PREGNANCY [None]
  - PREMATURE LABOUR [None]
  - SEPSIS [None]
  - STAPHYLOCOCCAL INFECTION [None]
